FAERS Safety Report 4274008-3 (Version None)
Quarter: 2004Q1

REPORT INFORMATION
  Report Type: 
  Country: None (occurrence: None)
  Receive Date: 20040115
  Receipt Date: 20040107
  Transmission Date: 20041129
  Serious: Yes (Hospitalization)
  Sender: FDA-Public Use
  Company Number: STA-AE-04-MTX-003

PATIENT
  Age: 53 Year
  Sex: Female

DRUGS (16)
  1. METHOTREXATE [Suspect]
     Indication: RHEUMATOID ARTHRITIS
     Dosage: 2.5 MG 1X PER 1 WK (ORAL)
     Route: 048
     Dates: start: 20030219, end: 20030324
  2. METHOTREXATE [Suspect]
     Indication: RHEUMATOID ARTHRITIS
     Dosage: 5 MG 1 X PER 1 WK ORAL : 10 MG 1 X PER 1 WK ORAL
     Route: 048
     Dates: start: 20030325, end: 20030820
  3. METHOTREXATE [Suspect]
     Indication: RHEUMATOID ARTHRITIS
     Dosage: 5 MG 1 X PER 1 WK ORAL : 10 MG 1 X PER 1 WK ORAL
     Route: 048
     Dates: start: 20030821, end: 20031119
  4. AZUCURENIN S (LEVOGLUTAMIDE/SODIUM GUALENATE) [Concomitant]
  5. SHUALMIN (SUCRALFATE) [Concomitant]
  6. PREDNISOLONE [Concomitant]
  7. LASIX [Concomitant]
  8. SPIRONOLACTONE [Concomitant]
  9. FOSAMAX [Concomitant]
  10. TRIAZOLAM [Concomitant]
  11. LANSOPRAZOLE [Concomitant]
  12. NICORANDIL [Concomitant]
  13. VALTREX [Concomitant]
  14. GLYCYRON (AMINOACETIC ACID/DL-METHIONINE/GLYCYRRHIZIC ACID) [Concomitant]
  15. TRANSAMIN (TRANEXAMIC ACID) [Concomitant]
  16. HICEE (ASCORBIC ACID) [Concomitant]

REACTIONS (5)
  - BONE MARROW DEPRESSION [None]
  - EATING DISORDER [None]
  - MALAISE [None]
  - STOMATITIS [None]
  - WHITE BLOOD CELL COUNT DECREASED [None]
